FAERS Safety Report 17402899 (Version 1)
Quarter: 2020Q1

REPORT INFORMATION
  Report Type: Spontaneous
  Country: US (occurrence: US)
  Receive Date: 20200211
  Receipt Date: 20200211
  Transmission Date: 20200409
  Serious: No
  Sender: FDA-Public Use
  Company Number: NVSC2020US035360

PATIENT
  Age: 29 Year
  Sex: Male
  Weight: 57.2 kg

DRUGS (3)
  1. DEFERIPRONE [Suspect]
     Active Substance: DEFERIPRONE
     Indication: THALASSAEMIA
     Dosage: 4000 MG, QD
     Route: 065
  2. DEFEROXAMINE [Suspect]
     Active Substance: DEFEROXAMINE MESYLATE
     Indication: THALASSAEMIA
     Dosage: 40 MG/KG, QD (OVER 8 HOURS AT NIGHT, DAYS 5-10)
     Route: 058
  3. DEFERASIROX. [Suspect]
     Active Substance: DEFERASIROX
     Indication: THALASSAEMIA
     Dosage: 30 MG/KG, QD (ON DAYS 15-20, 30 MIN PRIOR TO BREAKFAST)
     Route: 048

REACTIONS (1)
  - Drug ineffective [Unknown]
